FAERS Safety Report 7724814-5 (Version None)
Quarter: 2011Q3

REPORT INFORMATION
  Report Type: 
  Country: None (occurrence: None)
  Receive Date: 20110901
  Receipt Date: 20110829
  Transmission Date: 20111222
  Serious: Yes (Hospitalization)
  Sender: FDA-Public Use
  Company Number: US-PFIZER INC-2011201003

PATIENT
  Sex: Female
  Weight: 55.329 kg

DRUGS (1)
  1. ZOLOFT [Suspect]
     Indication: MAJOR DEPRESSION
     Dosage: 50 MG, 1X/DAY
     Route: 048
     Dates: start: 20110521, end: 20110521

REACTIONS (7)
  - CONTUSION [None]
  - PLATELET COUNT DECREASED [None]
  - SWELLING [None]
  - OVERDOSE [None]
  - EXOPHTHALMOS [None]
  - HEADACHE [None]
  - EYE DISORDER [None]
